FAERS Safety Report 18868922 (Version 2)
Quarter: 2021Q2

REPORT INFORMATION
  Report Type: Report from Study
  Country: None (occurrence: US)
  Receive Date: 20210209
  Receipt Date: 20210419
  Transmission Date: 20210717
  Serious: Yes (Hospitalization, Other)
  Sender: FDA-Public Use
  Company Number: US-ABBVIE-20P-163-3712298-00

PATIENT
  Age: 33 Year
  Sex: Male

DRUGS (8)
  1. MAGROLIMAB [Concomitant]
     Active Substance: MAGROLIMAB
     Indication: ACUTE MYELOID LEUKAEMIA
     Route: 065
     Dates: start: 20201202
  2. 5?AZACYTIDINE [Concomitant]
     Active Substance: AZACITIDINE
     Indication: ACUTE MYELOID LEUKAEMIA
     Route: 065
     Dates: start: 20201202, end: 20201208
  3. VENETOCLAX. [Suspect]
     Active Substance: VENETOCLAX
     Indication: ACUTE MYELOID LEUKAEMIA
     Dosage: DAY 1, 50 MG ON DAY 2, 70 MG ON DAYS 3 TO 20
     Route: 048
     Dates: start: 20201202, end: 20201221
  4. MAGROLIMAB [Concomitant]
     Active Substance: MAGROLIMAB
     Route: 065
     Dates: start: 20201209
  5. MAGROLIMAB [Concomitant]
     Active Substance: MAGROLIMAB
     Route: 065
     Dates: start: 20201212
  6. MAGROLIMAB [Concomitant]
     Active Substance: MAGROLIMAB
     Route: 065
     Dates: start: 20201216
  7. MAGROLIMAB [Concomitant]
     Active Substance: MAGROLIMAB
     Route: 065
     Dates: start: 20201222
  8. MAGROLIMAB [Concomitant]
     Active Substance: MAGROLIMAB
     Route: 065
     Dates: start: 20201205

REACTIONS (2)
  - Gastroenteritis sapovirus [Recovered/Resolved]
  - Abdominal pain [Not Recovered/Not Resolved]

NARRATIVE: CASE EVENT DATE: 20201229
